FAERS Safety Report 5315071-8 (Version None)
Quarter: 2007Q2

REPORT INFORMATION
  Report Type: 
  Country: None (occurrence: None)
  Receive Date: 20070502
  Receipt Date: 20070420
  Transmission Date: 20071010
  Serious: Yes (Other)
  Sender: FDA-Public Use
  Company Number: US-PFIZER INC-2007033319

PATIENT
  Sex: Female

DRUGS (3)
  1. CELEBREX [Suspect]
     Route: 048
     Dates: start: 19990601, end: 20010101
  2. BEXTRA [Suspect]
     Route: 048
     Dates: start: 20040801
  3. VIOXX [Suspect]
     Route: 048
     Dates: start: 19991001, end: 20000301

REACTIONS (1)
  - CEREBROVASCULAR ACCIDENT [None]
